FAERS Safety Report 4774119-X (Version None)
Quarter: 2005Q3

REPORT INFORMATION
  Report Type: 
  Country: None (occurrence: None)
  Receive Date: 20050914
  Receipt Date: 20050401
  Transmission Date: 20060218
  Serious: Yes (Other)
  Sender: FDA-Public Use
  Company Number: 163-20785-05040218

PATIENT
  Sex: Male

DRUGS (6)
  1. THALIDOMIDE OR PLACEBO (THALIDOMIDE) (CAPSULES) [Suspect]
     Indication: PROSTATIC INTRAEPITHELIAL NEOPLASIA
     Dosage: SEE IMAGE
     Route: 058
     Dates: start: 20001011
  2. THALIDOMIDE OR PLACEBO (THALIDOMIDE) (CAPSULES) [Suspect]
     Indication: PROSTATIC INTRAEPITHELIAL NEOPLASIA
     Dosage: SEE IMAGE
     Route: 058
     Dates: start: 20010530
  3. THALIDOMIDE OR PLACEBO (THALIDOMIDE) (CAPSULES) [Suspect]
     Indication: PROSTATIC INTRAEPITHELIAL NEOPLASIA
     Dosage: SEE IMAGE
     Route: 058
     Dates: start: 20020422
  4. LEUOROLIDE (L) OR GOSERELIN [Suspect]
     Dosage: (L) 7.5 MG IM OR GOSERELIN
     Dates: start: 20001011
  5. LEUOROLIDE (L) OR GOSERELIN [Suspect]
     Dosage: (L) 7.5 MG IM OR GOSERELIN
     Dates: start: 20010530
  6. LEUOROLIDE (L) OR GOSERELIN [Suspect]
     Dosage: (L) 7.5 MG IM OR GOSERELIN
     Dates: start: 20020422

REACTIONS (2)
  - DEPRESSED LEVEL OF CONSCIOUSNESS [None]
  - DYSPNOEA [None]
